FAERS Safety Report 6326045-2 (Version None)
Quarter: 2009Q3

REPORT INFORMATION
  Report Type: 
  Country: None (occurrence: None)
  Receive Date: 20090824
  Receipt Date: 20090812
  Transmission Date: 20100115
  Serious: Yes (Other)
  Sender: FDA-Public Use
  Company Number: DE-TEVA-206374ISR

PATIENT

DRUGS (2)
  1. FLUDARABINE PHOSPHATE [Suspect]
  2. CYCLOPHOSPHAMIDE [Suspect]

REACTIONS (1)
  - ARTERIAL OCCLUSIVE DISEASE [None]
